FAERS Safety Report 26054734 (Version 1)
Quarter: 2025Q4

REPORT INFORMATION
  Report Type: Spontaneous
  Country: EU (occurrence: EU)
  Receive Date: 20251117
  Receipt Date: 20251117
  Transmission Date: 20260118
  Serious: Yes (Other)
  Sender: RECORDATI
  Company Number: EU-ORPHANEU-2025008221

PATIENT
  Sex: Female

DRUGS (1)
  1. SILTUXIMAB [Suspect]
     Active Substance: SILTUXIMAB
     Indication: Castleman^s disease
     Dosage: UNK

REACTIONS (3)
  - Anaphylactic shock [Unknown]
  - Hypersensitivity [Unknown]
  - Off label use [Recovered/Resolved]
